FAERS Safety Report 16485358 (Version 1)
Quarter: 2019Q2

REPORT INFORMATION
  Report Type: Spontaneous
  Country: US (occurrence: US)
  Receive Date: 20190627
  Receipt Date: 20190627
  Transmission Date: 20190711
  Serious: Yes (Other)
  Sender: FDA-Public Use
  Company Number: US-TEVA-2019-US-1068958

PATIENT
  Age: 50 Year
  Sex: Female

DRUGS (7)
  1. OMEPRAZOL [Concomitant]
     Active Substance: OMEPRAZOLE
  2. LEVOTHYROXINE. [Concomitant]
     Active Substance: LEVOTHYROXINE
  3. AJOVY [Suspect]
     Active Substance: FREMANEZUMAB-VFRM
     Indication: MIGRAINE
     Dates: start: 20190601
  4. PRAZOSIN. [Concomitant]
     Active Substance: PRAZOSIN
  5. TRAMADOL. [Concomitant]
     Active Substance: TRAMADOL
  6. LORAZEPAM. [Concomitant]
     Active Substance: LORAZEPAM
  7. TOPIRAMATE. [Concomitant]
     Active Substance: TOPIRAMATE

REACTIONS (5)
  - Suicidal behaviour [Unknown]
  - Impulsive behaviour [Unknown]
  - Balance disorder [Unknown]
  - Depression [Unknown]
  - Vertigo [Unknown]
